FAERS Safety Report 14146299 (Version 1)
Quarter: 2017Q4

REPORT INFORMATION
  Report Type: Spontaneous
  Country: GB (occurrence: GB)
  Receive Date: 20171031
  Receipt Date: 20171031
  Transmission Date: 20180321
  Serious: Yes (Other)
  Sender: FDA-Public Use
  Company Number: GB-TEVA-819234ACC

PATIENT
  Age: 72 Year
  Sex: Male
  Weight: 120 kg

DRUGS (12)
  1. LINEZOLID. [Suspect]
     Active Substance: LINEZOLID
     Indication: OSTEOMYELITIS
     Dosage: 1200 MILLIGRAM DAILY;
     Route: 048
     Dates: start: 20171004, end: 20171005
  2. METRONIDAZOLE. [Concomitant]
     Active Substance: METRONIDAZOLE
     Dosage: 1200 MILLIGRAM DAILY;
  3. VIDENE [Concomitant]
  4. CIPROFLOXACIN. [Concomitant]
     Active Substance: CIPROFLOXACIN
     Dosage: 1000 MILLIGRAM DAILY;
  5. LEVOTHYROXINE. [Concomitant]
     Active Substance: LEVOTHYROXINE
     Dosage: 50 MICROGRAM DAILY;
  6. TINZAPARIN SODIUM [Concomitant]
     Active Substance: TINZAPARIN SODIUM
  7. PARACETAMOL [Concomitant]
     Active Substance: ACETAMINOPHEN
     Dosage: 4 GRAM DAILY;
  8. FERROUS SULFATE. [Concomitant]
     Active Substance: FERROUS SULFATE
     Dosage: 600 MILLIGRAM DAILY;
  9. MEROPENEM TRIHYDRATE [Concomitant]
     Active Substance: MEROPENEM
  10. DAPTOMYCIN. [Concomitant]
     Active Substance: DAPTOMYCIN
  11. FOLIC ACID. [Concomitant]
     Active Substance: FOLIC ACID
     Dosage: 5 MILLIGRAM DAILY;
  12. ZOMORPH [Concomitant]
     Active Substance: MORPHINE SULFATE
     Dosage: 180 MILLIGRAM DAILY;

REACTIONS (4)
  - Neuropathy peripheral [Unknown]
  - Paraesthesia [Unknown]
  - Optic neuropathy [Unknown]
  - Visual impairment [Unknown]
